FAERS Safety Report 11885837 (Version 2)
Quarter: 2016Q1

REPORT INFORMATION
  Report Type: Report from Study
  Country: US (occurrence: US)
  Receive Date: 20160104
  Receipt Date: 20160115
  Transmission Date: 20160526
  Serious: Yes (Hospitalization)
  Sender: FDA-Public Use
  Company Number: US-VERTEX PHARMACEUTICALS-2015-006041

PATIENT
  Sex: Female

DRUGS (46)
  1. NOVOLOG [Concomitant]
     Active Substance: INSULIN ASPART
     Dosage: 4 UNITS WITH MEALS
     Route: 058
  2. PULMOZYME [Concomitant]
     Active Substance: DORNASE ALFA
     Dosage: 2.5 MG, UNK
     Route: 055
  3. NORMAL SALINE [Concomitant]
     Active Substance: SODIUM CHLORIDE
  4. LISPRO INSULIN [Concomitant]
     Active Substance: INSULIN LISPRO
     Dosage: 4 UT, WITH MEALS
     Route: 058
  5. PIPERACILLIN SODIUM [Concomitant]
     Active Substance: PIPERACILLIN SODIUM
     Dosage: 3.375 G, TID
     Route: 042
  6. VITAMIN D [Concomitant]
     Active Substance: CHOLECALCIFEROL
     Indication: VITAMIN D DEFICIENCY
  7. ORKAMBI [Suspect]
     Active Substance: IVACAFTOR\LUMACAFTOR
     Indication: CYSTIC FIBROSIS
     Dosage: 200/125 MG, UNK
     Route: 048
     Dates: start: 20151202, end: 20151230
  8. COLACE [Concomitant]
     Active Substance: DOCUSATE SODIUM
     Indication: CONSTIPATION
     Dosage: 100 MG, BID
     Route: 048
  9. ASCORBIC ACID. [Concomitant]
     Active Substance: ASCORBIC ACID
     Dosage: 500 MG, BID
     Route: 048
  10. NAPROSYN [Concomitant]
     Active Substance: NAPROXEN
     Indication: PAIN
     Dosage: 500 MG, BID, WITH THE MEALS,PRN
     Route: 048
  11. BENADRYL [Concomitant]
     Active Substance: DIPHENHYDRAMINE HYDROCHLORIDE
     Indication: PRURITUS
     Dosage: 50 MG, Q6H,PRN
     Route: 048
  12. DIPHENHYDRAMINE HCL [Concomitant]
     Active Substance: DIPHENHYDRAMINE HYDROCHLORIDE
     Dosage: 25 MG, TID, PRN
     Route: 042
  13. DIPHENHYDRAMINE HCL [Concomitant]
     Active Substance: DIPHENHYDRAMINE HYDROCHLORIDE
     Dosage: 25 MG, QID, PRN
     Route: 042
  14. FLUTICASONE [Concomitant]
     Active Substance: FLUTICASONE\FLUTICASONE PROPIONATE
     Dosage: 1 INHALATION, BID
     Route: 055
  15. TESSALON [Concomitant]
     Active Substance: BENZONATATE
     Indication: COUGH
     Dosage: 100 MG,Q6H,  PRN
     Route: 048
  16. SINGULAIR [Concomitant]
     Active Substance: MONTELUKAST SODIUM
     Dosage: 10 MG, QD
     Route: 048
  17. PULMOZYME [Concomitant]
     Active Substance: DORNASE ALFA
     Dosage: UNK, BID
  18. FLONASE [Concomitant]
     Active Substance: FLUTICASONE PROPIONATE
  19. SODIUM CHLORIDE. [Concomitant]
     Active Substance: SODIUM CHLORIDE
     Dosage: 4 UNK, UNK
     Route: 055
  20. DOCUSATE SOD [Concomitant]
     Dosage: 100 MG, BID, PRN
     Route: 048
  21. RIVAROXABAN [Concomitant]
     Active Substance: RIVAROXABAN
     Dosage: 10 MG, QD
     Route: 048
  22. CREON [Concomitant]
     Active Substance: PANCRELIPASE AMYLASE\PANCRELIPASE LIPASE\PANCRELIPASE PROTEASE
     Dosage: 6 DFWITH MEALS
     Route: 048
  23. LANTUS [Concomitant]
     Active Substance: INSULIN GLARGINE
     Dosage: 18 UT, QD
     Route: 058
  24. AQUADEKS [Concomitant]
     Dosage: 2 DF, QD
     Route: 048
  25. ADVAIR HFA [Concomitant]
     Active Substance: FLUTICASONE PROPIONATE\SALMETEROL XINAFOATE
     Dosage: 1 INHALATION, BID
     Route: 055
  26. ALBUTEROL. [Concomitant]
     Active Substance: ALBUTEROL
     Dosage: 3 ML, EVERY 4 HOURS
     Route: 055
  27. FERROUS SULFATE [Concomitant]
     Active Substance: FERROUS SULFATE\FERROUS SULFATE, DRIED
     Dosage: 324 MG, TID
     Route: 048
  28. BENZONATATE. [Concomitant]
     Active Substance: BENZONATATE
     Dosage: 100 MG, QID, PRN
     Route: 048
  29. GUAIFENESIN. [Concomitant]
     Active Substance: GUAIFENESIN
     Dosage: 600 MG, BID
     Route: 048
  30. CREON [Concomitant]
     Active Substance: PANCRELIPASE AMYLASE\PANCRELIPASE LIPASE\PANCRELIPASE PROTEASE
     Dosage: 5 DF, PRN, WITH SNACKS
     Route: 048
  31. ULTRAM [Concomitant]
     Active Substance: TRAMADOL HYDROCHLORIDE
     Indication: PAIN
     Dosage: 50 MG,Q6H,  PRN
     Route: 048
  32. VITAMIN D3 [Concomitant]
     Active Substance: CHOLECALCIFEROL
     Dosage: 10000 UT, QD
     Route: 048
  33. MUCINEX [Concomitant]
     Active Substance: GUAIFENESIN
     Dosage: 600 MG, BID
     Route: 048
  34. PULMOZYME [Concomitant]
     Active Substance: DORNASE ALFA
     Dosage: 125 ML, BID
     Route: 055
  35. VITAMIN D [Concomitant]
     Active Substance: CHOLECALCIFEROL
     Indication: OSTEOPENIA
  36. XARELTO [Concomitant]
     Active Substance: RIVAROXABAN
     Dosage: 20 MG, QD
     Route: 048
  37. DEXTROSE. [Concomitant]
     Active Substance: DEXTROSE
     Dosage: 50 ML, PRN
     Route: 042
  38. DUONEB [Concomitant]
     Active Substance: ALBUTEROL SULFATE\IPRATROPIUM BROMIDE
     Indication: BRONCHITIS
     Dosage: UNK, QID
  39. FERATAB [Concomitant]
     Dosage: 324 MG, TID
     Route: 048
  40. SODIUM CHLORIDE. [Concomitant]
     Active Substance: SODIUM CHLORIDE
     Dosage: 1000 ML, UNK
     Route: 042
  41. ALBUTEROL. [Concomitant]
     Active Substance: ALBUTEROL
     Dosage: 2.5 MG, BID, PRN
     Route: 055
  42. DIPHENHYDRAMINE HCL [Concomitant]
     Active Substance: DIPHENHYDRAMINE HYDROCHLORIDE
     Dosage: 50 MG, QID, PRN
     Route: 048
  43. ALTEPLASE [Concomitant]
     Active Substance: ALTEPLASE
     Dosage: 2 MG, QD
     Route: 042
  44. LIPASE/PROTEASE/AMYLASE [Concomitant]
     Dosage: 6 DF, UNK
  45. TRAMADOL HCL [Concomitant]
     Active Substance: TRAMADOL HYDROCHLORIDE
     Dosage: 50 MG, QID, PRN
     Route: 048
  46. LEVAQUIN [Concomitant]
     Active Substance: LEVOFLOXACIN

REACTIONS (2)
  - Pneumonia [Recovering/Resolving]
  - Infective pulmonary exacerbation of cystic fibrosis [Recovering/Resolving]
